FAERS Safety Report 24358258 (Version 1)
Quarter: 2024Q3

REPORT INFORMATION
  Report Type: Spontaneous
  Country: FR (occurrence: FR)
  Receive Date: 20240924
  Receipt Date: 20240924
  Transmission Date: 20241016
  Serious: Yes (Other)
  Sender: PIERREL
  Company Number: FR-PIERREL S.P.A.-2024PIR00058

PATIENT
  Age: 8 Year
  Sex: Male

DRUGS (1)
  1. ORABLOC [Suspect]
     Active Substance: ARTICAINE HYDROCHLORIDE\EPINEPHRINE BITARTRATE
     Indication: Tooth restoration
     Dosage: 1.5 * 1/100 000
     Route: 065
     Dates: start: 20240522, end: 20240522

REACTIONS (3)
  - Emphysema [Recovered/Resolved]
  - Pain [Unknown]
  - Product primary packaging issue [Recovered/Resolved]

NARRATIVE: CASE EVENT DATE: 20240522
